FAERS Safety Report 8523055 (Version 3)
Quarter: 2013Q1

REPORT INFORMATION
  Report Type: Spontaneous
  Country: US (occurrence: US)
  Receive Date: 20120420
  Receipt Date: 20130131
  Transmission Date: 20140127
  Serious: Yes (Death, Other)
  Sender: FDA-Public Use
  Company Number: US-PFIZER INC-2012093587

PATIENT
  Age: 61 Year
  Sex: Female

DRUGS (2)
  1. VFEND [Suspect]
     Indication: ASPERGILLUS INFECTION
     Dosage: 200 MG, 2X/DAY
     Dates: start: 20111019
  2. VFEND [Suspect]
     Indication: SINUSITIS FUNGAL

REACTIONS (2)
  - Leukaemia [Fatal]
  - Pulmonary hypertension [Unknown]
